FAERS Safety Report 6645023-7 (Version None)
Quarter: 2010Q1

REPORT INFORMATION
  Report Type: 
  Country: None (occurrence: None)
  Receive Date: 20100322
  Receipt Date: 20100316
  Transmission Date: 20100710
  Serious: Yes (Death)
  Sender: FDA-Public Use
  Company Number: PHHY2010GB13726

PATIENT
  Sex: Male

DRUGS (9)
  1. CLOZARIL [Suspect]
     Indication: SCHIZOPHRENIA
     Dosage: UNK
     Dates: start: 20050110
  2. AMISULPRIDE [Concomitant]
     Dosage: 400 MG NOCTE
     Route: 048
  3. CITALOPRAM HYDROBROMIDE [Concomitant]
     Indication: DEPRESSION
     Dosage: 20 MG MANE
     Route: 048
  4. HYOSCINE HBR HYT [Concomitant]
     Indication: SALIVARY HYPERSECRETION
     Dosage: 600 UG NOCTE
  5. RAMIPRIL [Concomitant]
     Indication: HYPERTENSION
     Dosage: 10 MG MANE
  6. LACTULOSE [Concomitant]
     Indication: CONSTIPATION
     Dosage: 15MLS BD PRN
  7. FYBOGEL [Concomitant]
     Indication: CONSTIPATION
     Dosage: 1 SACHET OD PRN
  8. AMLODIPINE [Concomitant]
     Indication: HYPERTENSION
     Dosage: 5 MG, QD
  9. SIMVASTATIN [Concomitant]
     Indication: HYPERLIPIDAEMIA
     Dosage: 40 MG NOCTE

REACTIONS (1)
  - SUDDEN DEATH [None]
